FAERS Safety Report 25342553 (Version 1)
Quarter: 2025Q2

REPORT INFORMATION
  Report Type: Spontaneous
  Country: US (occurrence: US)
  Receive Date: 20250521
  Receipt Date: 20250521
  Transmission Date: 20250716
  Serious: No
  Sender: CATALYST PHARMA
  Company Number: US-CATALYST PHARMACEUTICALS-US-CATA-25-00559

PATIENT
  Sex: Male
  Weight: 44.898 kg

DRUGS (3)
  1. AGAMREE [Suspect]
     Active Substance: VAMOROLONE
     Indication: Duchenne muscular dystrophy
     Dosage: 6.9 ML DAILY
     Route: 048
     Dates: start: 20241017
  2. ATALUREN [Concomitant]
     Active Substance: ATALUREN
     Indication: Duchenne muscular dystrophy
     Dosage: 125 MG THREE TIMES DAILY
     Route: 048
  3. CALCIUM GUMMIES [Concomitant]
     Indication: Bone disorder
     Dosage: DAILY
     Route: 048

REACTIONS (1)
  - Weight decreased [Unknown]
